FAERS Safety Report 8074388-7 (Version None)
Quarter: 2012Q1

REPORT INFORMATION
  Report Type: 
  Country: None (occurrence: None)
  Receive Date: 20120126
  Receipt Date: 20120124
  Transmission Date: 20120608
  Serious: Yes (Death)
  Sender: FDA-Public Use
  Company Number: US-GLAXOSMITHKLINE-A0962929A

PATIENT
  Age: 33 Year
  Sex: Male

DRUGS (1)
  1. LAMICTAL XR [Suspect]
     Indication: CONVULSION
     Route: 048

REACTIONS (2)
  - EPISTAXIS [None]
  - ASPHYXIA [None]
